FAERS Safety Report 12347621 (Version 1)
Quarter: 2016Q2

REPORT INFORMATION
  Report Type: Spontaneous
  Country: IN (occurrence: IN)
  Receive Date: 20160509
  Receipt Date: 20160509
  Transmission Date: 20160815
  Serious: Yes (Hospitalization)
  Sender: FDA-Public Use
  Company Number: IN-WATSON-2016-09333

PATIENT
  Age: 65 Year
  Sex: Male

DRUGS (3)
  1. PIOGLITAZONE (UNKNOWN) [Suspect]
     Active Substance: PIOGLITAZONE
     Indication: DIABETES MELLITUS
     Dosage: 30 MG, UNKNOWN
     Route: 048
  2. METFORMIN [Concomitant]
     Active Substance: METFORMIN HYDROCHLORIDE
     Indication: DIABETES MELLITUS
     Dosage: 1 G, UNKNOWN
     Route: 048
  3. GLIMEPIRIDE. [Concomitant]
     Active Substance: GLIMEPIRIDE
     Indication: DIABETES MELLITUS
     Dosage: 2 MG, UNKNOWN
     Route: 048

REACTIONS (2)
  - Pulmonary oedema [Recovering/Resolving]
  - Cardiac failure congestive [Recovering/Resolving]
